FAERS Safety Report 20667957 (Version 1)
Quarter: 2022Q2

REPORT INFORMATION
  Report Type: Spontaneous
  Country: CA (occurrence: CA)
  Receive Date: 20220404
  Receipt Date: 20220404
  Transmission Date: 20220721
  Serious: Yes (Other)
  Sender: FDA-Public Use
  Company Number: CA-TEVA-2022-CA-2022893

PATIENT
  Age: 76 Year
  Sex: Male

DRUGS (2)
  1. CARBAMAZEPINE [Interacting]
     Active Substance: CARBAMAZEPINE
     Route: 065
  2. HYDROCHLOROTHIAZIDE [Interacting]
     Active Substance: HYDROCHLOROTHIAZIDE
     Route: 065

REACTIONS (2)
  - Hyponatraemia [Unknown]
  - Drug interaction [Unknown]
